FAERS Safety Report 15427875 (Version 2)
Quarter: 2018Q3

REPORT INFORMATION
  Report Type: Report from Study
  Country: None (occurrence: CH)
  Receive Date: 20180926
  Receipt Date: 20180926
  Transmission Date: 20181010
  Serious: Yes (Hospitalization, Other)
  Sender: FDA-Public Use
  Company Number: CH-ABBVIE-18K-151-2444522-00

PATIENT
  Age: 21 Year
  Sex: Female
  Weight: 51 kg

DRUGS (4)
  1. HUMIRA [Suspect]
     Active Substance: ADALIMUMAB
     Route: 058
  2. YOLIENNE [Suspect]
     Active Substance: DESOGESTREL
     Indication: ORAL CONTRACEPTION
     Route: 048
     Dates: end: 20170418
  3. HUMIRA [Suspect]
     Active Substance: ADALIMUMAB
     Indication: PSORIASIS
     Route: 058
     Dates: start: 20170130, end: 20170130
  4. HUMIRA [Suspect]
     Active Substance: ADALIMUMAB
     Route: 058
     Dates: start: 20170206, end: 20170811

REACTIONS (8)
  - Genitourinary tract infection [Recovered/Resolved]
  - Escherichia test positive [Unknown]
  - Ovarian cyst [Recovered/Resolved]
  - Pyelonephritis acute [Recovered/Resolved]
  - General physical health deterioration [Recovered/Resolved]
  - Rhinitis [Unknown]
  - Ovarian cyst [Recovered/Resolved]
  - Injection site pain [Recovered/Resolved]

NARRATIVE: CASE EVENT DATE: 20170130
